FAERS Safety Report 15258956 (Version 1)
Quarter: 2018Q3

REPORT INFORMATION
  Report Type: Spontaneous
  Country: US (occurrence: US)
  Receive Date: 20180809
  Receipt Date: 20180809
  Transmission Date: 20181010
  Serious: No
  Sender: FDA-Public Use
  Company Number: US-HORIZON-VIM-1103-2018

PATIENT
  Age: 62 Year
  Sex: Male

DRUGS (1)
  1. VIMOVO [Suspect]
     Active Substance: ESOMEPRAZOLE MAGNESIUM\NAPROXEN
     Indication: PRODUCT USED FOR UNKNOWN INDICATION
     Dosage: 1 TABLET BID
     Route: 048
     Dates: start: 201707, end: 201807

REACTIONS (2)
  - Pain [Unknown]
  - Inflammation [Unknown]

NARRATIVE: CASE EVENT DATE: 201807
